FAERS Safety Report 5309609-4 (Version None)
Quarter: 2007Q2

REPORT INFORMATION
  Report Type: 
  Country: None (occurrence: None)
  Receive Date: 20070427
  Receipt Date: 20070419
  Transmission Date: 20071010
  Serious: Yes (Hospitalization)
  Sender: FDA-Public Use
  Company Number: IT-AMGEN-UK220978

PATIENT
  Sex: Female

DRUGS (8)
  1. NESPO [Suspect]
     Indication: DRUG USE FOR UNKNOWN INDICATION
     Route: 058
     Dates: start: 20070404, end: 20070404
  2. TRIATEC [Concomitant]
  3. ATENOLOL [Concomitant]
  4. TORVAST [Concomitant]
  5. RIVASTIGIMINE [Concomitant]
  6. LASIX [Concomitant]
  7. PARIET [Concomitant]
  8. SEROQUEL [Concomitant]

REACTIONS (1)
  - OEDEMA [None]
